FAERS Safety Report 4677002-3 (Version None)
Quarter: 2005Q2

REPORT INFORMATION
  Report Type: 
  Country: None (occurrence: None)
  Receive Date: 20050526
  Receipt Date: 20050517
  Transmission Date: 20051028
  Serious: Yes (Life-Threatening, Hospitalization, Other)
  Sender: FDA-Public Use
  Company Number: 2005076764

PATIENT
  Age: 70 Year
  Sex: Female
  Weight: 63 kg

DRUGS (2)
  1. LIPITOR [Suspect]
     Indication: HYPERCHOLESTEROLAEMIA
     Dosage: 10 MG, ORAL
     Route: 048
     Dates: start: 20011231, end: 20050126
  2. ASPIRIN [Concomitant]

REACTIONS (13)
  - AMNESIA [None]
  - ASTHENIA [None]
  - BLOOD ALKALINE PHOSPHATASE INCREASED [None]
  - CHILLS [None]
  - CHOLANGITIS [None]
  - CHOLELITHIASIS [None]
  - DIARRHOEA [None]
  - GAMMA-GLUTAMYLTRANSFERASE INCREASED [None]
  - GASTROENTERITIS [None]
  - HEPATIC CYST [None]
  - INFLAMMATORY BOWEL DISEASE [None]
  - LETHARGY [None]
  - VOMITING [None]
